FAERS Safety Report 4677746-3 (Version None)
Quarter: 2005Q2

REPORT INFORMATION
  Report Type: 
  Country: None (occurrence: None)
  Receive Date: 20050527
  Receipt Date: 20050520
  Transmission Date: 20051028
  Serious: Yes (Death, Hospitalization)
  Sender: FDA-Public Use
  Company Number: ESWYE094506OCT04

PATIENT
  Age: 69 Year
  Sex: Male

DRUGS (47)
  1. RAPAMUNE [Suspect]
     Indication: PROPHYLAXIS AGAINST TRANSPLANT REJECTION
     Dosage: 6 MG 1X PER 1 DAY
     Route: 048
     Dates: start: 20040717, end: 20040929
  2. OMEPRAZOLE [Concomitant]
  3. MASTICAL (CALCIUM CARBONATE) [Concomitant]
  4. ROCALTROL [Concomitant]
  5. ADALAT OROS (NIFEDIPINE) [Concomitant]
  6. SEPTRIN FORTE (SULFAMETHOXAZOLE/TRIMETHORPRIM) [Concomitant]
  7. SIMULECT [Concomitant]
  8. LEXATIN (BROMAZEPAM) [Concomitant]
  9. TOBRAMYCIN SULFATE [Concomitant]
  10. AMPICILLIN [Concomitant]
  11. CLOXACILLIN (CLOXACILLIN) [Concomitant]
  12. PRIMPERAN TAB [Concomitant]
  13. NOLOTIL (METAMIZOLE MAGNESIUM) [Concomitant]
  14. HUMALOG [Concomitant]
  15. CALCIUM GLUCONATE [Concomitant]
  16. FORTAM (CEFTAZIDIME) [Concomitant]
  17. TARGOCID (TEICOPLATIN) [Concomitant]
  18. CEFUROXIME AXETIL [Concomitant]
  19. MANNITOL [Concomitant]
  20. FUROSEMIDE [Concomitant]
  21. DOPAMINE (DOPAMINE) [Concomitant]
  22. SODIUM BICARBONATE IN PLASTIC CONTAINER [Concomitant]
  23. PROPACETAMOL (PROPACETAMOL) [Concomitant]
  24. POTASSIUM CHLORIDE [Concomitant]
  25. TERMALGIN (PARACETAMOL) [Concomitant]
  26. BOI K (POTASSIUM ASCORBATE) [Concomitant]
  27. MYCOSTATIN [Concomitant]
  28. CARDURA [Concomitant]
  29. LEVOFLOXACIN [Concomitant]
  30. ALBUMIN (HUMAN) [Concomitant]
  31. POTASSIUM ACETATE [Concomitant]
  32. ACETAMINOPHEN [Concomitant]
  33. TAZOCEL (PIPERACILLIN/TAZOBACTAM) [Concomitant]
  34. ALMAX (ALMAGATE) [Concomitant]
  35. INSULIN [Concomitant]
  36. CARDURA [Concomitant]
  37. BUSCAPINA (HYOSCINE BUTYLBROMIDE) [Concomitant]
  38. DIFLUCAN [Concomitant]
  39. IMMUNE GLOBULIN INTRAVENOUS (HUMAN) [Concomitant]
  40. GANCICLOVIR SODIUM [Concomitant]
  41. SOLTRIM (SULFAMETHOXAZOLE/TRIMETHOPRIM) [Concomitant]
  42. SEPTRA [Concomitant]
  43. ZANTAC [Concomitant]
  44. CANCIDAS [Concomitant]
  45. PREDNISONE TAB [Concomitant]
  46. CELLCEPT [Concomitant]
  47. ATORVASTATIN CALCIUM [Concomitant]

REACTIONS (10)
  - GASTROENTERITIS [None]
  - HAEMOGLOBIN DECREASED [None]
  - INFECTION [None]
  - KIDNEY TRANSPLANT REJECTION [None]
  - MULTI-ORGAN FAILURE [None]
  - PNEUMONIA [None]
  - RED BLOOD CELL SCHISTOCYTES PRESENT [None]
  - SEPSIS [None]
  - SHOCK [None]
  - THROMBOTIC MICROANGIOPATHY [None]
